FAERS Safety Report 7906055-1 (Version None)
Quarter: 2011Q4

REPORT INFORMATION
  Report Type: 
  Country: None (occurrence: None)
  Receive Date: 20111110
  Receipt Date: 20111110
  Transmission Date: 20120403
  Serious: Yes (Other)
  Sender: FDA-Public Use
  Company Number: None

PATIENT
  Age: 38 Year
  Sex: Female
  Weight: 75.749 kg

DRUGS (2)
  1. DOXYCYCLINE [Suspect]
     Indication: SINUSITIS
     Dosage: 100 MG
     Route: 048
     Dates: start: 20110820, end: 20110830
  2. DOXYCYCLINE [Concomitant]
     Dosage: 100 MG
     Route: 048
     Dates: start: 20111030, end: 20111104

REACTIONS (5)
  - PARAESTHESIA [None]
  - PAIN IN EXTREMITY [None]
  - SCRATCH [None]
  - BURNING SENSATION [None]
  - SIMILAR REACTION ON PREVIOUS EXPOSURE TO DRUG [None]
